FAERS Safety Report 23774263 (Version 1)
Quarter: 2024Q2

REPORT INFORMATION
  Report Type: Report from Study
  Country: JP (occurrence: JP)
  Receive Date: 20240423
  Receipt Date: 20240423
  Transmission Date: 20240716
  Serious: Yes (Other)
  Sender: FDA-Public Use
  Company Number: JP-TEVA-VS-3186623

PATIENT
  Sex: Female

DRUGS (2)
  1. CARBOPLATIN [Suspect]
     Active Substance: CARBOPLATIN
     Indication: Endometrial cancer
     Dosage: AT 1/1000, 1/100, AND 1/10 DILUTIONS ALONG WITH AN UNDILUTED SOLUTION IN THE 250 ML OF GLUCOSE.
     Route: 042
  2. DEXTROSE [Concomitant]
     Active Substance: DEXTROSE\DEXTROSE MONOHYDRATE
     Indication: Vehicle solution use
     Dosage: IV CARBOPLATIN INFUSION EVERY 1H AT 1/1000, 1/100, AND 1/10 DILUTIONS ALONG WITH AN UNDILUTED SOL...
     Route: 050

REACTIONS (2)
  - Drug hypersensitivity [Unknown]
  - Erythema [Unknown]
